FAERS Safety Report 8009462-4 (Version None)
Quarter: 2011Q4

REPORT INFORMATION
  Report Type: 
  Country: None (occurrence: None)
  Receive Date: 20111227
  Receipt Date: 20111214
  Transmission Date: 20120403
  Serious: Yes (Other)
  Sender: FDA-Public Use
  Company Number: JP-SANOFI-AVENTIS-2011SA083210

PATIENT
  Sex: Female

DRUGS (2)
  1. LANTUS [Suspect]
     Dosage: DOSE:2 UNIT(S)
     Route: 065
     Dates: start: 20111105
  2. SOLOSTAR [Suspect]
     Indication: DEVICE THERAPY
     Route: 065
     Dates: start: 20111105

REACTIONS (2)
  - HAEMORRHAGE [None]
  - INJECTION SITE PAIN [None]
